FAERS Safety Report 15685291 (Version 1)
Quarter: 2018Q4

REPORT INFORMATION
  Report Type: Spontaneous
  Country: FR (occurrence: FR)
  Receive Date: 20181204
  Receipt Date: 20181204
  Transmission Date: 20190205
  Serious: Yes (Hospitalization)
  Sender: FDA-Public Use
  Company Number: PHHY2018FR171295

PATIENT
  Age: 80 Year
  Sex: Female
  Weight: 53 kg

DRUGS (4)
  1. BROMAZEPAM [Suspect]
     Active Substance: BROMAZEPAM
     Indication: INTENTIONAL OVERDOSE
     Dosage: UNK
     Route: 048
  2. LYRICA [Suspect]
     Active Substance: PREGABALIN
     Indication: INTENTIONAL OVERDOSE
     Dosage: 8 DF, ONCE/SINGLE
     Route: 048
     Dates: start: 20180831, end: 20180831
  3. BISOPROLOL [Suspect]
     Active Substance: BISOPROLOL
     Indication: INTENTIONAL OVERDOSE
     Dosage: UNK
     Route: 048
  4. PREDNISOLONE. [Concomitant]
     Active Substance: PREDNISOLONE
     Indication: INTENTIONAL OVERDOSE
     Dosage: 18 DF, ONCE/SINGLE
     Route: 048
     Dates: start: 20180831, end: 20180831

REACTIONS (3)
  - Somnolence [Recovered/Resolved]
  - Confusional state [Recovered/Resolved]
  - Poisoning deliberate [Recovered/Resolved]

NARRATIVE: CASE EVENT DATE: 20180831
